FAERS Safety Report 12659688 (Version 3)
Quarter: 2016Q4

REPORT INFORMATION
  Report Type: Spontaneous
  Country: US (occurrence: US)
  Receive Date: 20160817
  Receipt Date: 20161102
  Transmission Date: 20170207
  Serious: Yes (Hospitalization, Other)
  Sender: FDA-Public Use
  Company Number: US-MEDA-2016080019

PATIENT
  Age: 57 Year
  Sex: Female

DRUGS (5)
  1. INSULIN [Concomitant]
     Active Substance: INSULIN NOS
     Indication: DIABETES MELLITUS
  2. XANAX [Suspect]
     Active Substance: ALPRAZOLAM
  3. AMBIEN [Suspect]
     Active Substance: ZOLPIDEM TARTRATE
  4. SOMA [Suspect]
     Active Substance: CARISOPRODOL
     Indication: MYALGIA
     Route: 048
     Dates: start: 2014, end: 20160704
  5. ATIVAN [Suspect]
     Active Substance: LORAZEPAM

REACTIONS (8)
  - Oropharyngeal pain [Not Recovered/Not Resolved]
  - Blood glucose increased [Unknown]
  - Drug abuse [Unknown]
  - Malaise [Unknown]
  - Coma [Recovered/Resolved]
  - Seizure [Unknown]
  - Dysphagia [Recovering/Resolving]
  - Abasia [Recovering/Resolving]

NARRATIVE: CASE EVENT DATE: 201607
